FAERS Safety Report 7885222-X (Version None)
Quarter: 2011Q4

REPORT INFORMATION
  Report Type: 
  Country: None (occurrence: None)
  Receive Date: 20111102
  Receipt Date: 20110523
  Transmission Date: 20120403
  Serious: Yes (Hospitalization)
  Sender: FDA-Public Use
  Company Number: PHHY2011US46982

PATIENT

DRUGS (8)
  1. NORCO [Concomitant]
     Dosage: 325 MG, UNK
  2. TOPROL-XL [Concomitant]
     Dosage: 200 MG, UNK
     Route: 048
  3. PROZAC [Concomitant]
     Dosage: 20 MG, UNK
  4. ZOLEDRONIC [Suspect]
     Dosage: 4 MG, EVERY MONTH FOR 6 MONTHS THEN EVERY 3 MONTHS FRO 2.5 YEARS
     Dates: start: 20090219
  5. AROMASIN [Concomitant]
     Dosage: 25 MG, UNK
  6. ALBUTEROL [Concomitant]
     Dosage: 90 UG, UNK
  7. KLONOPIN [Concomitant]
     Dosage: 1 MG, UNK
  8. REQUIP [Concomitant]
     Dosage: 1 MG, UNK

REACTIONS (4)
  - DYSPNOEA [None]
  - ORTHOPNOEA [None]
  - CHEST PAIN [None]
  - CHEST DISCOMFORT [None]
